FAERS Safety Report 7029934-9 (Version None)
Quarter: 2010Q4

REPORT INFORMATION
  Report Type: 
  Country: None (occurrence: None)
  Receive Date: 20101006
  Receipt Date: 20100929
  Transmission Date: 20110411
  Serious: Yes (Hospitalization, Other)
  Sender: FDA-Public Use
  Company Number: FI-BAYER-201041024GPV

PATIENT
  Age: 47 Year
  Sex: Female

DRUGS (3)
  1. BETAFERON [Suspect]
     Indication: MULTIPLE SCLEROSIS
     Route: 058
     Dates: start: 19980101, end: 20100903
  2. LOSATRIX [Interacting]
     Indication: HYPERTENSION
     Dosage: TOTAL DAILY DOSE: 100 MG
     Route: 048
     Dates: start: 20100726, end: 20100906
  3. PARA-TABS [Interacting]
     Indication: PAIN
     Dosage: 1 TABLET 2-3 TIMES DAILY
     Route: 048
     Dates: start: 20100622, end: 20100903

REACTIONS (5)
  - HEPATIC FAILURE [None]
  - HEPATITIS [None]
  - JAUNDICE [None]
  - NAUSEA [None]
  - VOMITING [None]
